FAERS Safety Report 20986230 (Version 1)
Quarter: 2022Q2

REPORT INFORMATION
  Report Type: Spontaneous
  Country: US (occurrence: None)
  Receive Date: 20220621
  Receipt Date: 20220621
  Transmission Date: 20220721
  Serious: No
  Sender: FDA-Public Use
  Company Number: US-ROCHE-3063120

PATIENT

DRUGS (2)
  1. XELODA [Suspect]
     Active Substance: CAPECITABINE
     Indication: HER2 positive breast cancer
     Route: 048
  2. XELODA [Suspect]
     Active Substance: CAPECITABINE
     Dosage: FOUR TABLETS A DAY
     Route: 048

REACTIONS (5)
  - Ill-defined disorder [Not Recovered/Not Resolved]
  - Skin exfoliation [Unknown]
  - Skin fissures [Unknown]
  - Pain [Unknown]
  - Haemorrhage [Not Recovered/Not Resolved]
